FAERS Safety Report 26062748 (Version 1)
Quarter: 2025Q4

REPORT INFORMATION
  Report Type: Report from Study
  Country: ZA (occurrence: ZA)
  Receive Date: 20251119
  Receipt Date: 20251119
  Transmission Date: 20260117
  Serious: Yes (Other)
  Sender: ROCHE
  Company Number: ZA-ROCHE-10000371890

PATIENT
  Sex: Female

DRUGS (13)
  1. VABYSMO [Suspect]
     Active Substance: FARICIMAB-SVOA
     Indication: Macular degeneration
     Route: 050
     Dates: start: 20250902
  2. VABYSMO [Suspect]
     Active Substance: FARICIMAB-SVOA
     Indication: Diabetic retinal oedema
     Route: 050
  3. VABYSMO [Suspect]
     Active Substance: FARICIMAB-SVOA
     Indication: Retinal disorder
  4. VABYSMO [Suspect]
     Active Substance: FARICIMAB-SVOA
     Indication: Diabetic retinopathy
  5. VABYSMO [Suspect]
     Active Substance: FARICIMAB-SVOA
     Indication: Type 1 diabetes mellitus
  6. AVASTIN [Suspect]
     Active Substance: BEVACIZUMAB
     Indication: Type 1 diabetes mellitus
     Route: 050
  7. AVASTIN [Suspect]
     Active Substance: BEVACIZUMAB
     Indication: Diabetic retinopathy
  8. AVASTIN [Suspect]
     Active Substance: BEVACIZUMAB
     Indication: Diabetic retinal oedema
  9. AVASTIN [Suspect]
     Active Substance: BEVACIZUMAB
     Indication: Retinal disorder
  10. LUCENTIS [Suspect]
     Active Substance: RANIBIZUMAB
     Indication: Diabetic eye disease
     Route: 050
  11. LUCENTIS [Suspect]
     Active Substance: RANIBIZUMAB
     Indication: Diabetic retinopathy
  12. LUCENTIS [Suspect]
     Active Substance: RANIBIZUMAB
     Indication: Diabetic retinal oedema
  13. LUCENTIS [Suspect]
     Active Substance: RANIBIZUMAB
     Indication: Retinal disorder

REACTIONS (4)
  - Off label use [Unknown]
  - Visual acuity tests abnormal [Unknown]
  - Off label use [Unknown]
  - Retinal thickening [Unknown]
